FAERS Safety Report 8329071-7 (Version None)
Quarter: 2012Q2

REPORT INFORMATION
  Report Type: 
  Country: None (occurrence: None)
  Receive Date: 20120502
  Receipt Date: 20120427
  Transmission Date: 20120825
  Serious: No
  Sender: FDA-Public Use
  Company Number: US-PFIZER INC-2012082997

PATIENT
  Sex: Male
  Weight: 100 kg

DRUGS (3)
  1. ATENOLOL [Concomitant]
     Indication: HYPERTENSION
     Dosage: 50 MG,DAILY
  2. LIPITOR [Suspect]
     Dosage: UNK
  3. ATORVASTATIN CALCIUM [Suspect]
     Indication: BLOOD CHOLESTEROL INCREASED
     Dosage: UNK
     Dates: start: 20120101, end: 20120101

REACTIONS (4)
  - PAIN [None]
  - HYPOAESTHESIA [None]
  - MUSCLE SPASMS [None]
  - ARTHRALGIA [None]
